FAERS Safety Report 22287658 (Version 3)
Quarter: 2023Q2

REPORT INFORMATION
  Report Type: Spontaneous
  Country: PT (occurrence: PT)
  Receive Date: 20230505
  Receipt Date: 20230616
  Transmission Date: 20230722
  Serious: No
  Sender: FDA-Public Use
  Company Number: PT-MYLANLABS-2023M1042385

PATIENT
  Age: 63 Year
  Sex: Female

DRUGS (12)
  1. MONTELUKAST SODIUM [Suspect]
     Active Substance: MONTELUKAST SODIUM
     Indication: Cough
     Dosage: UNK
     Route: 048
  2. MONTELUKAST SODIUM [Suspect]
     Active Substance: MONTELUKAST SODIUM
     Indication: Asthenia
  3. MONTELUKAST SODIUM [Suspect]
     Active Substance: MONTELUKAST SODIUM
     Indication: Night sweats
  4. ACECLOFENAC [Concomitant]
     Active Substance: ACECLOFENAC
     Indication: Night sweats
     Dosage: UNK
  5. ACECLOFENAC [Concomitant]
     Active Substance: ACECLOFENAC
     Indication: Asthenia
  6. ACECLOFENAC [Concomitant]
     Active Substance: ACECLOFENAC
     Indication: Cough
  7. BUDESONIDE\FORMOTEROL [Concomitant]
     Active Substance: BUDESONIDE\FORMOTEROL
     Indication: Cough
     Dosage: UNK
  8. BUDESONIDE\FORMOTEROL [Concomitant]
     Active Substance: BUDESONIDE\FORMOTEROL
     Indication: Asthenia
  9. BUDESONIDE\FORMOTEROL [Concomitant]
     Active Substance: BUDESONIDE\FORMOTEROL
     Indication: Night sweats
  10. PREDNISOLONE [Concomitant]
     Active Substance: PREDNISOLONE
     Indication: Night sweats
     Dosage: UNK
  11. PREDNISOLONE [Concomitant]
     Active Substance: PREDNISOLONE
     Indication: Asthenia
  12. PREDNISOLONE [Concomitant]
     Active Substance: PREDNISOLONE
     Indication: Cough

REACTIONS (1)
  - Product use in unapproved indication [Unknown]
